FAERS Safety Report 20513677 (Version 1)
Quarter: 2022Q1

REPORT INFORMATION
  Report Type: Spontaneous
  Country: US (occurrence: US)
  Receive Date: 20220224
  Receipt Date: 20220224
  Transmission Date: 20220423
  Serious: No
  Sender: FDA-Public Use
  Company Number: US-AMNEAL PHARMACEUTICALS-2021-AMRX-01301

PATIENT
  Sex: Male

DRUGS (5)
  1. RYTARY [Suspect]
     Active Substance: CARBIDOPA\LEVODOPA
     Indication: Parkinson^s disease
     Dosage: UNK
     Route: 065
  2. RYTARY [Suspect]
     Active Substance: CARBIDOPA\LEVODOPA
     Dosage: 20 CAPSULES, QD (6 CAPS TID AND 2 CAPS BEDTIME)
     Route: 065
  3. RYTARY [Suspect]
     Active Substance: CARBIDOPA\LEVODOPA
     Dosage: 24 CAPSULES, DAILY, (8 CAPS IN MORNING, 8 CAPS ON 2ND DOSE, 6 CAPS ON 3RD DOSE AND 2 CAPS AT NIGHT)
     Route: 048
     Dates: start: 2021, end: 2021
  4. RYTARY [Suspect]
     Active Substance: CARBIDOPA\LEVODOPA
     Dosage: 2 CAPSULES, BEDTIME
     Route: 048
     Dates: start: 20210501
  5. SINEMET [Concomitant]
     Active Substance: CARBIDOPA\LEVODOPA
     Indication: Parkinson^s disease
     Dosage: 3X/DAY (SINEMET TABLET 100MG, 2 AND A HALF TABLET 3 TIMES A DAY)
     Route: 065
     Dates: start: 20210501

REACTIONS (5)
  - Therapeutic response shortened [Unknown]
  - Loss of personal independence in daily activities [Recovering/Resolving]
  - Balance disorder [Recovering/Resolving]
  - Nausea [Recovering/Resolving]
  - Dizziness [Recovering/Resolving]

NARRATIVE: CASE EVENT DATE: 20210101
